FAERS Safety Report 7273175-7 (Version None)
Quarter: 2011Q1

REPORT INFORMATION
  Report Type: 
  Country: None (occurrence: None)
  Receive Date: 20110203
  Receipt Date: 20101102
  Transmission Date: 20110831
  Serious: No
  Sender: FDA-Public Use
  Company Number: US-ABBOTT-10P-163-0682748-00

PATIENT
  Sex: Male
  Weight: 102.15 kg

DRUGS (3)
  1. VIAGRA [Concomitant]
     Indication: ERECTILE DYSFUNCTION
  2. SYNTHROID [Suspect]
     Indication: HYPOTHYROIDISM
     Route: 048
     Dates: start: 20020101
  3. BISOPROLOL [Concomitant]
     Indication: HYPERTENSION

REACTIONS (3)
  - URTICARIA [None]
  - PRODUCT COATING ISSUE [None]
  - RASH [None]
